FAERS Safety Report 17574299 (Version 2)
Quarter: 2020Q1

REPORT INFORMATION
  Report Type: Spontaneous
  Country: US (occurrence: US)
  Receive Date: 20200324
  Receipt Date: 20200326
  Transmission Date: 20200409
  Serious: Yes (Other)
  Sender: FDA-Public Use
  Company Number: US-ADVANZ PHARMA-GSH201806-002062

PATIENT

DRUGS (4)
  1. HYDROXYCHLOROQUINE SULFATE (AUTHORIZED GENERIC),PLAQUENIL [Suspect]
     Active Substance: HYDROXYCHLOROQUINE SULFATE
     Indication: SJOGREN^S SYNDROME
     Dosage: 7.01 MG/KG DAILY DOSE (2.01 MG/KG GREATER THAN CURRENT RECOMMENDATIONS)
     Route: 065
  2. ANASTROZOLE. [Interacting]
     Active Substance: ANASTROZOLE
     Indication: INVASIVE LOBULAR BREAST CARCINOMA
     Dosage: UNK
     Route: 065
  3. CYCLOPHOSPHAMIDE. [Interacting]
     Active Substance: CYCLOPHOSPHAMIDE
     Indication: INVASIVE LOBULAR BREAST CARCINOMA
     Dosage: 21-DAY CYCLES
     Route: 065
  4. DOCETAXEL. [Interacting]
     Active Substance: DOCETAXEL
     Indication: INVASIVE LOBULAR BREAST CARCINOMA
     Dosage: 21-DAY CYCLES
     Route: 065

REACTIONS (3)
  - Retinal toxicity [Not Recovered/Not Resolved]
  - Drug interaction [Unknown]
  - Toxicity to various agents [Unknown]
